FAERS Safety Report 12644918 (Version 2)
Quarter: 2016Q3

REPORT INFORMATION
  Report Type: Spontaneous
  Country: US (occurrence: US)
  Receive Date: 20160811
  Receipt Date: 20160831
  Transmission Date: 20161109
  Serious: No
  Sender: FDA-Public Use
  Company Number: US-PFIZER INC-2016374303

PATIENT
  Age: 48 Year
  Sex: Female

DRUGS (1)
  1. GABAPENTIN. [Suspect]
     Active Substance: GABAPENTIN
     Dosage: 300 MG, 3X/DAY (300MG CAPSULES, 1 CAPSULE BY MOUTH 3 TIMES DAILY)
     Route: 048

REACTIONS (3)
  - Feeling abnormal [Unknown]
  - Activities of daily living impaired [Unknown]
  - Somnolence [Unknown]
